FAERS Safety Report 9030120 (Version 1)
Quarter: 2013Q1

REPORT INFORMATION
  Report Type: Spontaneous
  Country: US (occurrence: US)
  Receive Date: 20130125
  Receipt Date: 20130125
  Transmission Date: 20140127
  Serious: No
  Sender: FDA-Public Use
  Company Number: US-BIOGENIDEC-2013BI005945

PATIENT
  Age: 28 Year
  Sex: Male

DRUGS (2)
  1. AVONEX [Suspect]
     Indication: MULTIPLE SCLEROSIS
     Route: 030
     Dates: start: 20090904, end: 20120623
  2. AVONEX [Suspect]
     Indication: MULTIPLE SCLEROSIS
     Route: 030
     Dates: start: 20120804

REACTIONS (4)
  - Balance disorder [Not Recovered/Not Resolved]
  - Mobility decreased [Recovered/Resolved]
  - Hypotonia [Recovered/Resolved with Sequelae]
  - Loss of control of legs [Recovered/Resolved]
